FAERS Safety Report 15284368 (Version 1)
Quarter: 2018Q4

REPORT INFORMATION
  Report Type: Report from Study
  Country: CO (occurrence: CO)
  Receive Date: 20180816
  Receipt Date: 20180816
  Transmission Date: 20190204
  Serious: Yes (Life-Threatening, Hospitalization, Other)
  Sender: FDA-Public Use
  Company Number: CO-SHIRE-CO201821289AA

PATIENT

DRUGS (8)
  1. SALBUTAMOL [Concomitant]
     Active Substance: ALBUTEROL
     Indication: LUNG DISORDER
  2. BECLOMETHASONE [Concomitant]
     Active Substance: BECLOMETHASONE
     Indication: LUNG DISORDER
  3. MONTELUKAST [Concomitant]
     Active Substance: MONTELUKAST SODIUM
     Indication: LUNG DISORDER
  4. INTRATECT [Suspect]
     Active Substance: HUMAN IMMUNOGLOBULIN G
     Indication: PRIMARY IMMUNODEFICIENCY SYNDROME
     Dosage: UNK
     Route: 065
  5. KIOVIG [Suspect]
     Active Substance: HUMAN IMMUNOGLOBULIN G
     Indication: PRIMARY IMMUNODEFICIENCY SYNDROME
     Dosage: 15 G, EVERY 15 DAYS
     Route: 050
  6. BUDESONIDE. [Concomitant]
     Active Substance: BUDESONIDE
     Indication: LUNG DISORDER
  7. FORMOTEROL [Concomitant]
     Active Substance: FORMOTEROL
     Indication: LUNG DISORDER
  8. CIPROFLOXACIN. [Concomitant]
     Active Substance: CIPROFLOXACIN
     Indication: SINUSITIS

REACTIONS (6)
  - Hyperhidrosis [Not Recovered/Not Resolved]
  - Pneumonia [Unknown]
  - Hypothermia [Not Recovered/Not Resolved]
  - Headache [Not Recovered/Not Resolved]
  - Hyperthermia [Unknown]
  - Viral infection [Not Recovered/Not Resolved]

NARRATIVE: CASE EVENT DATE: 201805
